FAERS Safety Report 9555078 (Version 1)
Quarter: 2013Q3

REPORT INFORMATION
  Report Type: Spontaneous
  Country: US (occurrence: None)
  Receive Date: 20130925
  Receipt Date: 20130925
  Transmission Date: 20140515
  Serious: No
  Sender: FDA-Public Use
  Company Number: None

PATIENT
  Sex: Female
  Weight: 136.08 kg

DRUGS (1)
  1. ADDERALL XR [Suspect]
     Dosage: SEE IMAGE PARTIAL INELIGIBLE
     Route: 048

REACTIONS (1)
  - No therapeutic response [None]
